FAERS Safety Report 25654468 (Version 1)
Quarter: 2025Q3

REPORT INFORMATION
  Report Type: Spontaneous
  Country: US (occurrence: US)
  Receive Date: 20250807
  Receipt Date: 20250807
  Transmission Date: 20251020
  Serious: No
  Sender: ALKERMES
  Company Number: US-ALKERMES INC.-ALK-2025-002079

PATIENT
  Sex: Female

DRUGS (1)
  1. VIVITROL [Suspect]
     Active Substance: NALTREXONE
     Indication: Alcoholism
     Route: 030
     Dates: start: 202507

REACTIONS (5)
  - Suicidal ideation [Unknown]
  - Herpes virus infection [Unknown]
  - Limb injury [Unknown]
  - Conjunctivitis [Unknown]
  - Alcohol use [Unknown]
